FAERS Safety Report 5722897-5 (Version None)
Quarter: 2008Q2

REPORT INFORMATION
  Report Type: 
  Country: None (occurrence: None)
  Receive Date: 20080425
  Receipt Date: 20080416
  Transmission Date: 20081010
  Serious: Yes (Death, Hospitalization)
  Sender: FDA-Public Use
  Company Number: 285-20785-08041452

PATIENT
  Age: 53 Year
  Sex: Female
  Weight: 62 kg

DRUGS (7)
  1. THALIDOMIDE [Suspect]
     Indication: MULTIPLE MYELOMA
     Dosage: ORAL
     Route: 048
  2. CYCLOPHOSPHAMIDE [Suspect]
     Indication: MULTIPLE MYELOMA
  3. DEXAMETHASONE TAB [Suspect]
     Indication: MULTIPLE MYELOMA
  4. NORVASC [Concomitant]
  5. RISPERDAL [Concomitant]
  6. ALDACTONE [Concomitant]
  7. LASIX [Concomitant]

REACTIONS (6)
  - ABDOMINAL DISTENSION [None]
  - DIARRHOEA [None]
  - LOSS OF CONSCIOUSNESS [None]
  - OEDEMA [None]
  - SEPTIC SHOCK [None]
  - URINE OUTPUT DECREASED [None]
